FAERS Safety Report 11108665 (Version 2)
Quarter: 2015Q2

REPORT INFORMATION
  Report Type: Spontaneous
  Country: GB (occurrence: GB)
  Receive Date: 20150513
  Receipt Date: 20150516
  Transmission Date: 20150821
  Serious: Yes (Other)
  Sender: FDA-Public Use
  Company Number: GB-AUROBINDO-AUR-APL-2015-04180

PATIENT
  Age: 38 Year
  Sex: Female

DRUGS (2)
  1. GABAPENTIN FILM-COATED TABLET [Suspect]
     Active Substance: GABAPENTIN
     Indication: PAIN
     Dosage: 900 MG, 3X/DAY (3 TIMES A DAY)
     Route: 065
  2. METHADONE [Concomitant]
     Active Substance: METHADONE HYDROCHLORIDE
     Indication: PRODUCT USED FOR UNKNOWN INDICATION
     Dosage: 75 ML, DAILY
     Route: 065

REACTIONS (7)
  - Salivary hypersecretion [Unknown]
  - Joint stiffness [Unknown]
  - Cholinergic syndrome [Unknown]
  - Overdose [Unknown]
  - Speech disorder [Unknown]
  - Extrapyramidal disorder [Unknown]
  - Sedation [Unknown]
